FAERS Safety Report 7011881-X (Version None)
Quarter: 2010Q3

REPORT INFORMATION
  Report Type: 
  Country: None (occurrence: None)
  Receive Date: 20100924
  Receipt Date: 20100915
  Transmission Date: 20110219
  Serious: Yes (Hospitalization)
  Sender: FDA-Public Use
  Company Number: US-BIOGENIDEC-2009BI041063

PATIENT
  Age: 53 Year
  Sex: Female
  Weight: 68 kg

DRUGS (18)
  1. TYSABRI [Suspect]
     Indication: MULTIPLE SCLEROSIS
     Route: 042
     Dates: start: 20080326, end: 20091118
  2. TYSABRI [Suspect]
     Route: 042
     Dates: start: 20100802
  3. ADDERALL 10 [Concomitant]
     Route: 048
  4. AMIRIPTYLINE [Concomitant]
  5. AVALIDE [Concomitant]
  6. BACLOFEN [Concomitant]
     Route: 048
  7. BACTRIM DS [Concomitant]
  8. DANTRIUM [Concomitant]
     Route: 048
  9. ENABLEX [Concomitant]
     Route: 048
  10. MARINOL [Concomitant]
     Route: 048
  11. MULTI-VITAMIN [Concomitant]
  12. SOMA [Concomitant]
     Route: 048
  13. SYNTHROID [Concomitant]
     Route: 048
  14. ULTRAM [Concomitant]
     Route: 048
  15. URINARY HEALTH TABLET [Concomitant]
     Route: 048
  16. VITAMIN B-12 [Concomitant]
     Route: 048
  17. ASCORBIC ACID [Concomitant]
     Route: 048
  18. VITAMIN D [Concomitant]
     Route: 048

REACTIONS (1)
  - SPINAL DEFORMITY [None]
